FAERS Safety Report 18027560 (Version 3)
Quarter: 2020Q3

REPORT INFORMATION
  Report Type: Spontaneous
  Country: US (occurrence: US)
  Receive Date: 20200716
  Receipt Date: 20200907
  Transmission Date: 20201103
  Serious: No
  Sender: FDA-Public Use
  Company Number: US-BIOGEN-2020BI00898267

PATIENT
  Sex: Male

DRUGS (1)
  1. TYSABRI [Suspect]
     Active Substance: NATALIZUMAB
     Indication: MULTIPLE SCLEROSIS
     Route: 065
     Dates: start: 20191121

REACTIONS (5)
  - Memory impairment [Recovered/Resolved]
  - Multiple sclerosis [Unknown]
  - Mania [Not Recovered/Not Resolved]
  - Product dose omission issue [Unknown]
  - Eye disorder [Unknown]
